FAERS Safety Report 8247195-X (Version None)
Quarter: 2012Q1

REPORT INFORMATION
  Report Type: 
  Country: None (occurrence: None)
  Receive Date: 20120330
  Receipt Date: 20120322
  Transmission Date: 20120608
  Serious: Yes (Hospitalization)
  Sender: FDA-Public Use
  Company Number: US-BAYER-2012-028771

PATIENT
  Age: 37 Year
  Sex: Female

DRUGS (3)
  1. PROTON PUMP INHIBITORS [Concomitant]
  2. YAZ [Suspect]
  3. CHORIONIC GONADOTROPIN [Concomitant]
     Indication: WEIGHT DECREASED

REACTIONS (3)
  - PULMONARY EMBOLISM [None]
  - DYSPNOEA [None]
  - DEEP VEIN THROMBOSIS [None]
